FAERS Safety Report 19055556 (Version 6)
Quarter: 2022Q2

REPORT INFORMATION
  Report Type: Report from Study
  Country: US (occurrence: US)
  Receive Date: 20210325
  Receipt Date: 20220415
  Transmission Date: 20220720
  Serious: Yes (Other)
  Sender: FDA-Public Use
  Company Number: NVSC2021US056393

PATIENT
  Sex: Female

DRUGS (4)
  1. ENTRESTO [Suspect]
     Active Substance: SACUBITRIL\VALSARTAN
     Indication: Product used for unknown indication
     Dosage: UNK UNK, BID
     Route: 048
  2. ENTRESTO [Suspect]
     Active Substance: SACUBITRIL\VALSARTAN
     Dosage: UNK
     Route: 048
  3. ENTRESTO [Suspect]
     Active Substance: SACUBITRIL\VALSARTAN
     Dosage: 1 DOSAGE FORM, QD (97/103 MG)
     Route: 065
  4. ENTRESTO [Suspect]
     Active Substance: SACUBITRIL\VALSARTAN
     Dosage: 1 DOSAGE FORM, BID (97/103 MG)
     Route: 065

REACTIONS (20)
  - Diabetes mellitus [Unknown]
  - Fluid retention [Unknown]
  - Hypertension [Recovered/Resolved]
  - Feeling abnormal [Recovered/Resolved]
  - Somnolence [Unknown]
  - Frustration tolerance decreased [Unknown]
  - Memory impairment [Unknown]
  - Arthralgia [Unknown]
  - COVID-19 [Unknown]
  - Respiratory tract infection [Unknown]
  - Joint swelling [Unknown]
  - Pain [Unknown]
  - Osteopenia [Unknown]
  - Bundle branch block left [Unknown]
  - Oxygen consumption increased [Unknown]
  - Fatigue [Unknown]
  - Asthenia [Unknown]
  - Product dose omission issue [Unknown]
  - Product dispensing error [Unknown]
  - Therapeutic response unexpected [Unknown]
